FAERS Safety Report 11377808 (Version 2)
Quarter: 2015Q3

REPORT INFORMATION
  Report Type: Spontaneous
  Country: US (occurrence: US)
  Receive Date: 20150811
  Receipt Date: 20150903
  Transmission Date: 20151125
  Serious: Yes (Hospitalization)
  Sender: FDA-Public Use
  Company Number: US-ELI_LILLY_AND_COMPANY-US200812001975

PATIENT
  Age: 40 Year
  Sex: Male
  Weight: 135.15 kg

DRUGS (7)
  1. HUMULIN N [Suspect]
     Active Substance: INSULIN HUMAN
  2. HUMULIN N [Suspect]
     Active Substance: INSULIN HUMAN
     Dates: start: 200311, end: 200402
  3. NOVOLOG [Concomitant]
     Active Substance: INSULIN ASPART
     Dates: start: 200807
  4. HUMULIN N [Suspect]
     Active Substance: INSULIN HUMAN
     Dosage: UNK, UNK
     Dates: start: 200603, end: 200603
  5. HUMALOG [Suspect]
     Active Substance: INSULIN LISPRO
     Indication: TYPE 2 DIABETES MELLITUS
     Dates: start: 200312, end: 200401
  6. HUMALOG [Suspect]
     Active Substance: INSULIN LISPRO
     Dates: end: 200603
  7. BYETTA [Concomitant]
     Active Substance: EXENATIDE
     Dates: start: 200506

REACTIONS (4)
  - Blood glucose abnormal [Recovered/Resolved]
  - Hyperglycaemia [Unknown]
  - Hypersensitivity [Unknown]
  - Drug hypersensitivity [Unknown]

NARRATIVE: CASE EVENT DATE: 200311
